FAERS Safety Report 8735462 (Version 2)
Quarter: 2012Q4

REPORT INFORMATION
  Report Type: 
  Country: US (occurrence: US)
  Receive Date: 20120822
  Receipt Date: 20120914
  Transmission Date: 20130627
  Serious: No
  Sender: FDA-Public Use
  Company Number: US-009507513-1207USA002111

PATIENT

DRUGS (3)
  1. VICTRELIS [Suspect]
     Indication: HEPATITIS C
     Dosage: 800 mg, tid
     Route: 048
     Dates: start: 20120502
  2. PEGASYS [Suspect]
     Dosage: UNK
  3. RIBAPAK [Suspect]
     Dosage: UNK

REACTIONS (1)
  - Treatment failure [Unknown]
